FAERS Safety Report 4820673-9 (Version None)
Quarter: 2005Q4

REPORT INFORMATION
  Report Type: 
  Country: None (occurrence: None)
  Receive Date: 20051104
  Receipt Date: 20051028
  Transmission Date: 20060501
  Serious: Yes (Hospitalization)
  Sender: FDA-Public Use
  Company Number: US-JNJFOC-20051100115

PATIENT
  Age: 39 Year
  Sex: Male

DRUGS (19)
  1. RISPERDAL [Suspect]
     Indication: DRUG USE FOR UNKNOWN INDICATION
  2. LANTUS [Suspect]
     Dosage: (TAKEN ^FOR A COUPLE OF WEEKS^)
     Route: 058
  3. ZOLOFT [Suspect]
     Indication: DRUG USE FOR UNKNOWN INDICATION
  4. BACLOFEN [Concomitant]
  5. DIFLUCAN [Concomitant]
  6. MULTI-VITAMIN [Concomitant]
  7. MULTI-VITAMIN [Concomitant]
  8. MULTI-VITAMIN [Concomitant]
  9. MULTI-VITAMIN [Concomitant]
  10. MULTI-VITAMIN [Concomitant]
  11. MULTI-VITAMIN [Concomitant]
  12. MULTI-VITAMIN [Concomitant]
  13. MULTI-VITAMIN [Concomitant]
  14. ZINC [Concomitant]
  15. OMEPRAZOLE [Concomitant]
  16. ASCORBIC ACID [Concomitant]
  17. LASIX [Concomitant]
  18. VANCOMYCIN [Concomitant]
  19. MAXAQUIN [Concomitant]

REACTIONS (4)
  - DIABETES MELLITUS [None]
  - PARANOIA [None]
  - SEPSIS [None]
  - SOMNOLENCE [None]
